FAERS Safety Report 15920586 (Version 1)
Quarter: 2019Q1

REPORT INFORMATION
  Report Type: Spontaneous
  Country: PL (occurrence: PL)
  Receive Date: 20190205
  Receipt Date: 20190205
  Transmission Date: 20190417
  Serious: Yes (Other)
  Sender: FDA-Public Use
  Company Number: PL-MYLANLABS-2019M1009721

PATIENT
  Sex: Female

DRUGS (2)
  1. TIANEPTINE [Concomitant]
     Active Substance: TIANEPTINE
     Indication: DEPRESSION
     Dosage: 10 MILLIGRAM, QD (10 MG DAILY)
     Route: 065
  2. ESCITALOPRAM [Suspect]
     Active Substance: ESCITALOPRAM OXALATE
     Indication: DEPRESSION
     Dosage: UNK (OVERDOSE: 37.5 MG PER DAY)
     Route: 065

REACTIONS (4)
  - Mental impairment [Unknown]
  - Learning disorder [Unknown]
  - Drug effect incomplete [Unknown]
  - Overdose [Unknown]
